FAERS Safety Report 25208022 (Version 1)
Quarter: 2025Q2

REPORT INFORMATION
  Report Type: Other
  Country: US (occurrence: US)
  Receive Date: 20250417
  Receipt Date: 20250417
  Transmission Date: 20250717
  Serious: Yes (Hospitalization, Other)
  Sender: RENATA LIMITED
  Company Number: US-Renata Limited-2175063

PATIENT
  Age: 85 Year
  Sex: Female

DRUGS (3)
  1. VALSARTAN [Suspect]
     Active Substance: VALSARTAN
     Indication: Hypertension
  2. HYDROCHLOROTHIAZIDE [Interacting]
     Active Substance: HYDROCHLOROTHIAZIDE
  3. CARVEDILOL [Interacting]
     Active Substance: CARVEDILOL

REACTIONS (2)
  - BRASH syndrome [Recovering/Resolving]
  - Drug interaction [Unknown]
